FAERS Safety Report 6401823-X (Version None)
Quarter: 2009Q4

REPORT INFORMATION
  Report Type: 
  Country: None (occurrence: None)
  Receive Date: 20091013
  Receipt Date: 20091013
  Transmission Date: 20100525
  Serious: Yes (Other)
  Sender: FDA-Public Use
  Company Number: None

PATIENT
  Age: 15 Year
  Sex: Female

DRUGS (2)
  1. TEGRETOL-XR [Suspect]
     Indication: ADJUSTMENT DISORDER WITH MIXED ANXIETY AND DEPRESSED MOOD
     Dosage: 200MG 1 Q.H.S. P.O.
     Route: 048
     Dates: start: 20091007, end: 20091009
  2. TEGRETOL-XR [Suspect]
     Indication: OPPOSITIONAL DEFIANT DISORDER
     Dosage: 200MG 1 Q.H.S. P.O.
     Route: 048
     Dates: start: 20091007, end: 20091009

REACTIONS (1)
  - RASH PRURITIC [None]
